FAERS Safety Report 17262242 (Version 3)
Quarter: 2023Q2

REPORT INFORMATION
  Report Type: Spontaneous
  Country: TR (occurrence: TR)
  Receive Date: 20200113
  Receipt Date: 20230428
  Transmission Date: 20230722
  Serious: Yes (Other)
  Sender: FDA-Public Use
  Company Number: TR-PFIZER INC-2020008559

PATIENT
  Age: 65 Year
  Sex: Male

DRUGS (5)
  1. METHYLPREDNISOLONE ACETATE [Suspect]
     Active Substance: METHYLPREDNISOLONE ACETATE
     Indication: Diffuse large B-cell lymphoma
     Dosage: 80 MG, CYCLIC (ON DAYS 1-5, THREE WEEKLY, ON A 21-DAY CYCLE OF R-CHOP)
  2. VINCRISTINE SULFATE [Suspect]
     Active Substance: VINCRISTINE SULFATE
     Indication: Diffuse large B-cell lymphoma
     Dosage: 2 MG, CYCLIC (21-DAY CYCLE OF R-CHOP)
  3. DOXORUBICIN [Suspect]
     Active Substance: DOXORUBICIN
     Indication: Diffuse large B-cell lymphoma
     Dosage: 50 MG/M2, CYCLIC  (ON DAY 1, 21-DAY CYCLE OF R-CHOP)
  4. RITUXIMAB [Suspect]
     Active Substance: RITUXIMAB
     Indication: Diffuse large B-cell lymphoma
     Dosage: 375 MG/M2,  CYCLIC (21-DAY CYCLE OF R-CHOP)
  5. CYCLOPHOSPHAMIDE [Suspect]
     Active Substance: CYCLOPHOSPHAMIDE
     Indication: Diffuse large B-cell lymphoma
     Dosage: 750 MG/M2, CYCLIC  (ON DAY 1 IN 21-DAY CYCLE, R-CHOP)

REACTIONS (2)
  - Kaposi^s sarcoma [Recovered/Resolved]
  - Nausea [Unknown]
